FAERS Safety Report 15386258 (Version 1)
Quarter: 2018Q3

REPORT INFORMATION
  Report Type: Spontaneous
  Country: CH (occurrence: CH)
  Receive Date: 20180914
  Receipt Date: 20180914
  Transmission Date: 20181010
  Serious: Yes (Other)
  Sender: FDA-Public Use
  Company Number: CH-SAKK-2018SA253573AA

PATIENT
  Age: 84 Year
  Sex: Male

DRUGS (17)
  1. MADOPAR [Suspect]
     Active Substance: BENSERAZIDE HYDROCHLORIDE\LEVODOPA
     Dosage: 250 MG, TID
     Route: 048
     Dates: start: 201807
  2. NORVASC [Concomitant]
     Active Substance: AMLODIPINE BESYLATE
     Dosage: UNK
  3. VENTOLIN [Concomitant]
     Active Substance: ALBUTEROL SULFATE
     Dates: start: 20180703
  4. CHLORURE DE SODIUM [Concomitant]
     Active Substance: SODIUM CHLORIDE
     Dates: start: 20180703
  5. GLUCOSE [Concomitant]
     Active Substance: DEXTROSE
     Dates: start: 20180703
  6. TAVANIC [Suspect]
     Active Substance: LEVOFLOXACIN
     Dosage: 250 MG, UNK
     Route: 042
     Dates: start: 20180703, end: 20180705
  7. JANUMET [Suspect]
     Active Substance: METFORMIN HYDROCHLORIDE\SITAGLIPTIN PHOSPHATE
     Dosage: 1 DF, QD
     Route: 048
  8. PERFALGAN [Concomitant]
     Active Substance: ACETAMINOPHEN
     Dosage: UNK, PRN
     Dates: start: 20180703
  9. AMARYL [Suspect]
     Active Substance: GLIMEPIRIDE
     Dosage: 1 MG, QD
     Route: 048
  10. LAXOBERON [Concomitant]
     Active Substance: SODIUM PICOSULFATE
     Dosage: UNK, PRN
  11. LOSARTAN POTASSIUM. [Suspect]
     Active Substance: LOSARTAN POTASSIUM
     Dosage: 50 MG, QD
     Route: 048
  12. CALCIPARINE [Concomitant]
     Active Substance: HEPARIN CALCIUM
     Dates: start: 20180703
  13. ZOLOFT [Concomitant]
     Active Substance: SERTRALINE HYDROCHLORIDE
  14. RESONIUM?A [Concomitant]
     Active Substance: SODIUM POLYSTYRENE SULFONATE
     Dosage: UNK UNK, TOTAL
     Dates: start: 20180704, end: 20180704
  15. MEMANTINE HYDROCHLORIDE. [Suspect]
     Active Substance: MEMANTINE HYDROCHLORIDE
     Dosage: 20 MG, QD
     Route: 048
  16. IMOVANE [Concomitant]
     Active Substance: ZOPICLONE
     Dosage: UNK
  17. GLUCOSE [Concomitant]
     Active Substance: DEXTROSE
     Dates: start: 20180703

REACTIONS (3)
  - Acute kidney injury [Recovering/Resolving]
  - Generalised tonic-clonic seizure [Recovered/Resolved]
  - Hypoglycaemia [Recovered/Resolved]

NARRATIVE: CASE EVENT DATE: 201806
